FAERS Safety Report 8075786-8 (Version None)
Quarter: 2012Q1

REPORT INFORMATION
  Report Type: 
  Country: None (occurrence: None)
  Receive Date: 20120125
  Receipt Date: 20120125
  Transmission Date: 20120608
  Serious: No
  Sender: FDA-Public Use
  Company Number: None

PATIENT
  Sex: Male

DRUGS (1)
  1. REBIF [Suspect]
     Indication: MULTIPLE SCLEROSIS
     Dosage: REBIF 44MCG TIW SQ
     Route: 058
     Dates: start: 20110107, end: 20120123

REACTIONS (2)
  - PARAESTHESIA [None]
  - HYPOAESTHESIA [None]
